FAERS Safety Report 4492970-0 (Version None)
Quarter: 2004Q4

REPORT INFORMATION
  Report Type: 
  Country: None (occurrence: None)
  Receive Date: 20041104
  Receipt Date: 20040929
  Transmission Date: 20050328
  Serious: Yes (Death, Other)
  Sender: FDA-Public Use
  Company Number: PHBS2004JP13026

PATIENT
  Age: 31 Year
  Sex: Female
  Weight: 65 kg

DRUGS (2)
  1. NEORAL [Suspect]
     Indication: APLASTIC ANAEMIA
     Dosage: 150 MG/DAY
     Route: 048
     Dates: start: 20040813, end: 20040820
  2. NEORAL [Suspect]
     Dosage: 25 MG/DAY
     Route: 048
     Dates: start: 20040918, end: 20040919

REACTIONS (13)
  - CEREBELLAR HAEMATOMA [None]
  - CEREBRAL HAEMORRHAGE [None]
  - DIZZINESS [None]
  - EYE MOVEMENT DISORDER [None]
  - HEADACHE [None]
  - MUSCULAR WEAKNESS [None]
  - NAUSEA [None]
  - PHARYNGOLARYNGEAL PAIN [None]
  - PLATELET COUNT DECREASED [None]
  - PYREXIA [None]
  - RESPIRATORY FAILURE [None]
  - VOMITING [None]
  - WHITE BLOOD CELL COUNT DECREASED [None]
